FAERS Safety Report 9156811 (Version 2)
Quarter: 2013Q3

REPORT INFORMATION
  Report Type: Spontaneous
  Country: US (occurrence: US)
  Receive Date: 20130312
  Receipt Date: 20130820
  Transmission Date: 20140515
  Serious: Yes (Hospitalization)
  Sender: FDA-Public Use
  Company Number: US-BAYER-2013-028123

PATIENT
  Age: 45 Year
  Sex: Female
  Weight: 70 kg

DRUGS (15)
  1. OCELLA [Suspect]
     Indication: ACNE
  2. YASMIN [Suspect]
     Indication: CONTRACEPTION
  3. YASMIN [Suspect]
     Indication: ACNE
  4. YAZ [Suspect]
     Indication: CONTRACEPTION
  5. YAZ [Suspect]
     Indication: ACNE
  6. ALBUTEROL [Concomitant]
     Route: 045
  7. LEXAPRO [Concomitant]
     Dosage: 10 MG, UNK
     Dates: start: 20110531, end: 20110726
  8. FLEXERIL [Concomitant]
     Dosage: 10 MG, UNK
     Dates: start: 20110801
  9. IBUPROFEN [Concomitant]
     Dosage: 600 MG, TID
  10. VENTOLIN HFA [Concomitant]
     Dosage: 90 MCG
     Dates: start: 20110527, end: 20110722
  11. FLOVENT [Concomitant]
  12. VICODIN [Concomitant]
     Dosage: UNK, PRN
  13. VICODIN [Concomitant]
     Dosage: 5 MG, UNK
  14. VICODIN [Concomitant]
     Dosage: 500 MG, UNK
  15. MAXALT [Concomitant]
     Indication: MIGRAINE

REACTIONS (4)
  - Pulmonary embolism [Recovered/Resolved]
  - Injury [None]
  - Pain [None]
  - Pain [Recovered/Resolved]
